FAERS Safety Report 12896627 (Version 1)
Quarter: 2016Q4

REPORT INFORMATION
  Report Type: Spontaneous
  Country: US (occurrence: US)
  Receive Date: 20161031
  Receipt Date: 20161031
  Transmission Date: 20170207
  Serious: Yes (Other)
  Sender: FDA-Public Use
  Company Number: US-RECORDATI RARE DISEASES-US-R13005-16-00281

PATIENT
  Sex: Male

DRUGS (1)
  1. PANHEMATIN [Suspect]
     Active Substance: HEMIN
     Indication: PRODUCT USED FOR UNKNOWN INDICATION
     Dates: start: 201607

REACTIONS (4)
  - Vomiting [Unknown]
  - Seizure [Unknown]
  - Off label use [Unknown]
  - Pain [Unknown]
